FAERS Safety Report 4684088-9 (Version None)
Quarter: 2005Q2

REPORT INFORMATION
  Report Type: 
  Country: None (occurrence: None)
  Receive Date: 20050531
  Receipt Date: 20050425
  Transmission Date: 20051028
  Serious: Yes (Hospitalization, Other)
  Sender: FDA-Public Use
  Company Number: US_0410106496

PATIENT
  Age: 43 Year
  Sex: Female
  Weight: 80 kg

DRUGS (13)
  1. ZYPREXA [Suspect]
     Indication: AFFECTIVE DISORDER
     Dosage: 10 MG/1 AT BEDTIME
     Dates: start: 20010226, end: 20011218
  2. 12MG/50MG OLANZIPINE/FLUOXETINE CAPSULE [Concomitant]
  3. RISPERDAL [Concomitant]
  4. BUPROPION [Concomitant]
  5. CITALOPRAM HYDROBROMIDE [Concomitant]
  6. GLIPIZIDE [Concomitant]
  7. METFORMIN [Concomitant]
  8. ZOLOFT [Concomitant]
  9. SYNTHROID [Concomitant]
  10. NORVASC [Concomitant]
  11. ATENOLOL [Concomitant]
  12. COMBIVENT [Concomitant]
  13. ALLEGRA [Concomitant]

REACTIONS (8)
  - ABDOMINAL PAIN [None]
  - DIABETES MELLITUS [None]
  - HEPATIC CIRRHOSIS [None]
  - HEPATIC STEATOSIS [None]
  - HEPATITIS [None]
  - IMPAIRED GASTRIC EMPTYING [None]
  - LIVER DISORDER [None]
  - LIVER FUNCTION TEST ABNORMAL [None]
